FAERS Safety Report 23761662 (Version 2)
Quarter: 2024Q3

REPORT INFORMATION
  Report Type: Spontaneous
  Country: US (occurrence: US)
  Receive Date: 20240419
  Receipt Date: 20240802
  Transmission Date: 20241016
  Serious: Yes (Other)
  Sender: FDC LIMITED
  Company Number: US-FDC-2024USSPO00309

PATIENT
  Age: 72 Year
  Sex: Female
  Weight: 74.8 kg

DRUGS (2)
  1. OFLOXACIN [Suspect]
     Active Substance: OFLOXACIN
     Indication: Dry eye
     Dosage: 01 DROP IN RIGHT EYE
     Route: 047
  2. OFLOXACIN [Suspect]
     Active Substance: OFLOXACIN
     Indication: Dry mouth

REACTIONS (7)
  - Closed globe injury [Recovered/Resolved]
  - Eye infection [Recovered/Resolved]
  - Condition aggravated [Recovered/Resolved]
  - Eye pain [Recovered/Resolved]
  - Eye irritation [Recovered/Resolved]
  - Ocular hyperaemia [Recovered/Resolved]
  - Product use in unapproved indication [Unknown]
